FAERS Safety Report 9727596 (Version 2)
Quarter: 2014Q1

REPORT INFORMATION
  Report Type: Report from Study
  Country: US (occurrence: US)
  Receive Date: 20131203
  Receipt Date: 20140219
  Transmission Date: 20141002
  Serious: Yes (Hospitalization)
  Sender: FDA-Public Use
  Company Number: US-PURDUE-USA-2013-0109075

PATIENT
  Age: 41 Year
  Sex: Male

DRUGS (3)
  1. OXY CR TAB [Suspect]
     Indication: ARTHRALGIA
     Dosage: UNK
     Dates: start: 201212
  2. OXY CR TAB [Suspect]
     Dosage: 10 MG, DAILY
     Route: 048
  3. OXY CR TAB [Suspect]
     Dosage: 30 MG, Q12H
     Route: 048

REACTIONS (1)
  - Pneumonia [Unknown]
